FAERS Safety Report 13950556 (Version 1)
Quarter: 2017Q3

REPORT INFORMATION
  Report Type: Spontaneous
  Country: US (occurrence: US)
  Receive Date: 20170908
  Receipt Date: 20170908
  Transmission Date: 20171128
  Serious: No
  Sender: FDA-Public Use
  Company Number: US-ROCHE-1165071

PATIENT
  Age: 43 Year
  Sex: Female

DRUGS (1)
  1. RITUXAN [Suspect]
     Active Substance: RITUXIMAB
     Indication: RHEUMATOID ARTHRITIS
     Route: 065

REACTIONS (7)
  - Tremor [Unknown]
  - Muscle spasms [Unknown]
  - Oxygen saturation decreased [Unknown]
  - Feeling cold [Unknown]
  - Dysphagia [Unknown]
  - Aphasia [Unknown]
  - Dyspnoea [Unknown]

NARRATIVE: CASE EVENT DATE: 20121106
